FAERS Safety Report 7887645-1 (Version None)
Quarter: 2011Q4

REPORT INFORMATION
  Report Type: 
  Country: None (occurrence: None)
  Receive Date: 20111103
  Receipt Date: 20111026
  Transmission Date: 20120403
  Serious: No
  Sender: FDA-Public Use
  Company Number: US-BIOGENIDEC-2011BI041127

PATIENT
  Age: 61 Year
  Sex: Male

DRUGS (1)
  1. TYSABRI [Suspect]
     Indication: MULTIPLE SCLEROSIS
     Route: 042
     Dates: start: 20080902, end: 20110510

REACTIONS (4)
  - MUSCULAR WEAKNESS [None]
  - PAIN IN EXTREMITY [None]
  - DECREASED APPETITE [None]
  - WEIGHT DECREASED [None]
